FAERS Safety Report 19828264 (Version 8)
Quarter: 2022Q1

REPORT INFORMATION
  Report Type: Report from Study
  Country: ES (occurrence: None)
  Receive Date: 20210914
  Receipt Date: 20220228
  Transmission Date: 20220424
  Serious: Yes (Hospitalization)
  Sender: FDA-Public Use
  Company Number: ES-EISAI MEDICAL RESEARCH-EC-2021-099352

PATIENT
  Age: 64 Year
  Sex: Male
  Weight: 51.6 kg

DRUGS (17)
  1. LENVATINIB [Suspect]
     Active Substance: LENVATINIB
     Indication: Gastric cancer
     Dosage: STARTING DOSE AT 20 MG, FLUCTUATED DOSAGE
     Route: 048
     Dates: start: 20210601, end: 20210827
  2. LENVATINIB [Suspect]
     Active Substance: LENVATINIB
     Route: 048
     Dates: start: 20210828
  3. PEMBROLIZUMAB [Suspect]
     Active Substance: PEMBROLIZUMAB
     Indication: Gastric cancer
     Route: 041
     Dates: start: 20210601, end: 20210728
  4. PEMBROLIZUMAB [Suspect]
     Active Substance: PEMBROLIZUMAB
     Route: 041
     Dates: start: 20210817, end: 20210817
  5. HERBALS\SAW PALMETTO [Concomitant]
     Active Substance: HERBALS\SAW PALMETTO
     Dates: start: 20210520
  6. LORMETAZEPAM [Concomitant]
     Active Substance: LORMETAZEPAM
     Dates: start: 20210320, end: 20210906
  7. MST [Concomitant]
     Dates: start: 20210520
  8. LANSOPRAZOLE [Concomitant]
     Active Substance: LANSOPRAZOLE
     Dates: start: 20210520
  9. ACETAMINOPHEN [Concomitant]
     Active Substance: ACETAMINOPHEN
     Dates: start: 20210520
  10. IBUPROFEN [Concomitant]
     Active Substance: IBUPROFEN
     Dates: start: 20210520
  11. ENOXAPARIN SODIUM [Concomitant]
     Active Substance: ENOXAPARIN SODIUM
     Route: 058
     Dates: start: 20210520
  12. MOVICOL [Concomitant]
     Active Substance: POLYETHYLENE GLYCOL 3350\POTASSIUM CHLORIDE\SODIUM BICARBONATE\SODIUM CHLORIDE
     Dates: start: 20210607
  13. PRIMPERAN [Concomitant]
     Active Substance: METOCLOPRAMIDE HYDROCHLORIDE
     Dates: start: 20210621
  14. ALMAX [Concomitant]
     Dates: start: 20210621
  15. ENALAPRIL [Concomitant]
     Active Substance: ENALAPRIL
     Dates: start: 20210705
  16. ZIVEREL [Concomitant]
     Dates: start: 20210705
  17. LOPERAMIDE HYDROCHLORIDE [Concomitant]
     Active Substance: LOPERAMIDE HYDROCHLORIDE
     Dates: start: 20210712

REACTIONS (1)
  - Hypokalaemia [Recovered/Resolved]

NARRATIVE: CASE EVENT DATE: 20210906
